FAERS Safety Report 6500183-3 (Version None)
Quarter: 2009Q4

REPORT INFORMATION
  Report Type: 
  Country: None (occurrence: None)
  Receive Date: 20091216
  Receipt Date: 20091210
  Transmission Date: 20100525
  Serious: Yes (Other)
  Sender: FDA-Public Use
  Company Number: ES-PFIZER INC-2009308224

PATIENT
  Age: 75 Year
  Sex: Female

DRUGS (5)
  1. TOVIAZ [Suspect]
     Indication: URINARY INCONTINENCE
     Dosage: 4 MG, 1X/DAY
     Route: 048
     Dates: start: 20090928, end: 20090930
  2. GALENIC /HYDROCHLOROTHIAZIDE/VALSARTAN/ [Concomitant]
  3. METFORMIN HCL [Concomitant]
     Indication: DIABETES MELLITUS
     Dosage: 425 MG, 2X/DAY
     Route: 048
     Dates: start: 20090109
  4. LANTUS [Concomitant]
     Indication: DIABETES MELLITUS
     Dosage: 18 IU, 1X/DAY
     Dates: start: 20090713
  5. ORFIDAL [Concomitant]
     Dosage: UNK
     Dates: start: 20090804

REACTIONS (4)
  - CONSTIPATION [None]
  - HEADACHE [None]
  - HYPERGLYCAEMIA [None]
  - NERVOUSNESS [None]
